FAERS Safety Report 5651648-8 (Version None)
Quarter: 2008Q1

REPORT INFORMATION
  Report Type: 
  Country: None (occurrence: None)
  Receive Date: 20080131
  Receipt Date: 20071115
  Transmission Date: 20080703
  Serious: No
  Sender: FDA-Public Use
  Company Number: US200711003921

PATIENT
  Age: 74 Year
  Sex: Female
  Weight: 107 kg

DRUGS (3)
  1. BYETTA [Suspect]
     Indication: WEIGHT CONTROL
     Dosage: 5 UG, 2/D, SUBCUTANEOUS
     Route: 058
     Dates: start: 20071012, end: 20071112
  2. ACTOS /USA/ (PIOGLITAZONE HYDROCHLORIDE) [Concomitant]
  3. ACIPHEX [Concomitant]

REACTIONS (7)
  - DECREASED APPETITE [None]
  - DIZZINESS [None]
  - ERUCTATION [None]
  - HICCUPS [None]
  - NAUSEA [None]
  - REFLUX OESOPHAGITIS [None]
  - WEIGHT DECREASED [None]
